FAERS Safety Report 26217980 (Version 1)
Quarter: 2025Q4

REPORT INFORMATION
  Report Type: Spontaneous
  Country: EU (occurrence: EU)
  Receive Date: 20251231
  Receipt Date: 20251231
  Transmission Date: 20260117
  Serious: Yes (Hospitalization)
  Sender: AMGEN
  Company Number: EU-GLAXOSMITHKLINE-FR2022GSK067822

PATIENT
  Age: 71 Year
  Sex: Female
  Weight: 68.7 kg

DRUGS (25)
  1. BEVACIZUMAB [Suspect]
     Active Substance: BEVACIZUMAB
     Indication: Ovarian cancer
     Dosage: 942 MG
     Route: 040
     Dates: start: 20210322
  2. BEVACIZUMAB [Suspect]
     Active Substance: BEVACIZUMAB
     Dosage: 940.5 MG
     Route: 040
     Dates: start: 20210503
  3. BEVACIZUMAB [Suspect]
     Active Substance: BEVACIZUMAB
     Dosage: 945 MG
     Route: 040
     Dates: start: 20210525
  4. BEVACIZUMAB [Suspect]
     Active Substance: BEVACIZUMAB
     Dosage: 937.50 MG
     Route: 040
     Dates: start: 20210707
  5. BEVACIZUMAB [Suspect]
     Active Substance: BEVACIZUMAB
     Dosage: 945 MG
     Route: 040
     Dates: start: 20210726
  6. BEVACIZUMAB [Suspect]
     Active Substance: BEVACIZUMAB
     Dosage: 931.5 MG
     Route: 040
     Dates: start: 20210816
  7. BEVACIZUMAB [Suspect]
     Active Substance: BEVACIZUMAB
     Dosage: 943.5 MG
     Route: 040
     Dates: start: 20210906
  8. BEVACIZUMAB [Suspect]
     Active Substance: BEVACIZUMAB
     Dosage: 930 MG
     Route: 040
     Dates: start: 20210927
  9. BEVACIZUMAB [Suspect]
     Active Substance: BEVACIZUMAB
     Dosage: 934.5 MG
     Route: 040
     Dates: start: 20211018
  10. BEVACIZUMAB [Suspect]
     Active Substance: BEVACIZUMAB
     Dosage: 945 MG
     Route: 040
     Dates: start: 20211108
  11. BEVACIZUMAB [Suspect]
     Active Substance: BEVACIZUMAB
     Dosage: 940.50 MG
     Route: 040
     Dates: start: 20211129
  12. BEVACIZUMAB [Suspect]
     Active Substance: BEVACIZUMAB
     Dosage: 937.5 UNK
     Route: 040
     Dates: start: 20220112
  13. BEVACIZUMAB [Suspect]
     Active Substance: BEVACIZUMAB
     Dosage: 922.5 MG
     Route: 040
     Dates: start: 20220207
  14. NIRAPARIB [Suspect]
     Active Substance: NIRAPARIB
     Indication: Ovarian cancer
     Dosage: UNK
     Route: 065
     Dates: start: 20210525
  15. NIRAPARIB [Suspect]
     Active Substance: NIRAPARIB
     Dosage: UNK
     Route: 065
     Dates: start: 20210707
  16. DOSTARLIMAB [Suspect]
     Active Substance: DOSTARLIMAB
     Indication: Ovarian cancer
     Dosage: UNK
     Route: 065
     Dates: start: 20201110
  17. CARBOPLATIN [Suspect]
     Active Substance: CARBOPLATIN
     Indication: Ovarian cancer
     Dosage: 375 MG
     Route: 040
     Dates: start: 20201020
  18. CARBOPLATIN [Suspect]
     Active Substance: CARBOPLATIN
     Dosage: 371 MG
     Route: 040
     Dates: start: 20201110
  19. CARBOPLATIN [Suspect]
     Active Substance: CARBOPLATIN
     Dosage: 358 MG
     Route: 040
     Dates: start: 20201207
  20. CARBOPLATIN [Suspect]
     Active Substance: CARBOPLATIN
     Dosage: 398.5 MG
     Route: 040
     Dates: start: 20210301
  21. CARBOPLATIN [Suspect]
     Active Substance: CARBOPLATIN
     Dosage: 402.55 MG
     Route: 040
     Dates: start: 20210322
  22. CARBOPLATIN [Suspect]
     Active Substance: CARBOPLATIN
     Dosage: 400.11 MG
     Route: 040
     Dates: start: 20210412
  23. PACLITAXEL [Suspect]
     Active Substance: PACLITAXEL
     Indication: Ovarian cancer
     Dosage: 297.50 MG
     Route: 040
     Dates: start: 20201020
  24. PACLITAXEL [Suspect]
     Active Substance: PACLITAXEL
     Dosage: 294 MG
     Route: 040
     Dates: start: 20201110
  25. PACLITAXEL [Suspect]
     Active Substance: PACLITAXEL
     Dosage: 287 MG
     Route: 040
     Dates: start: 20210301

REACTIONS (1)
  - Small intestinal perforation [Not Recovered/Not Resolved]

NARRATIVE: CASE EVENT DATE: 20220418
